FAERS Safety Report 5265624-0 (Version None)
Quarter: 2007Q1

REPORT INFORMATION
  Report Type: 
  Country: None (occurrence: None)
  Receive Date: 20061213
  Receipt Date: 20020716
  Transmission Date: 20070707
  Serious: No
  Sender: FDA-Public Use
  Company Number: 2002UW09704

PATIENT
  Age: 67 Year
  Sex: Female

DRUGS (2)
  1. TAMOXIFEN [Suspect]
  2. COUMADIN [Concomitant]

REACTIONS (2)
  - VAGINAL DISCHARGE [None]
  - VAGINAL HAEMORRHAGE [None]
